FAERS Safety Report 21354181 (Version 2)
Quarter: 2022Q4

REPORT INFORMATION
  Report Type: Spontaneous
  Country: GB (occurrence: GB)
  Receive Date: 20220920
  Receipt Date: 20221010
  Transmission Date: 20230113
  Serious: Yes (Death, Other)
  Sender: FDA-Public Use
  Company Number: GB-MYLANLABS-2022M1027507

PATIENT
  Age: 62 Year
  Sex: Female

DRUGS (1)
  1. CLOZARIL [Suspect]
     Active Substance: CLOZAPINE
     Indication: Schizophrenia
     Dosage: UNK
     Route: 048
     Dates: start: 20210816

REACTIONS (3)
  - Death [Fatal]
  - Renal impairment [Unknown]
  - Anaemia [Unknown]

NARRATIVE: CASE EVENT DATE: 20220412
